FAERS Safety Report 9092479 (Version 1)
Quarter: 2013Q1

REPORT INFORMATION
  Report Type: Report from Study
  Country: US (occurrence: US)
  Receive Date: 20130131
  Receipt Date: 20130131
  Transmission Date: 20140127
  Serious: Yes (Other)
  Sender: FDA-Public Use
  Company Number: US-ABBOTT-12P-163-1022432-00

PATIENT
  Sex: Male
  Weight: 78.09 kg

DRUGS (2)
  1. HUMIRA [Suspect]
     Indication: RHEUMATOID ARTHRITIS
     Dates: start: 2010, end: 201211
  2. HUMIRA [Suspect]
     Dates: start: 20121208

REACTIONS (1)
  - Arthralgia [Recovering/Resolving]
